FAERS Safety Report 7488158-1 (Version None)
Quarter: 2011Q2

REPORT INFORMATION
  Report Type: 
  Country: None (occurrence: None)
  Receive Date: 20110518
  Receipt Date: 20110511
  Transmission Date: 20111010
  Serious: Yes (Other)
  Sender: FDA-Public Use
  Company Number: US-ROCHE-776911

PATIENT
  Age: 48 Year
  Sex: Male

DRUGS (1)
  1. PEGASYS [Suspect]
     Route: 065

REACTIONS (3)
  - PARANOIA [None]
  - HOMICIDE [None]
  - COMPLETED SUICIDE [None]
